FAERS Safety Report 11052295 (Version 1)
Quarter: 2015Q2

REPORT INFORMATION
  Report Type: Report from Study
  Country: AU (occurrence: AU)
  Receive Date: 20150421
  Receipt Date: 20150421
  Transmission Date: 20150821
  Serious: Yes (Death, Hospitalization)
  Sender: FDA-Public Use
  Company Number: AU-INCYTE CORPORATION-2015IN001571

PATIENT

DRUGS (1)
  1. JAKAFI [Suspect]
     Active Substance: RUXOLITINIB
     Indication: MYELOFIBROSIS
     Dosage: 20 MG, BID
     Route: 065

REACTIONS (5)
  - Multi-organ failure [Fatal]
  - Drug ineffective [Unknown]
  - Neutropenic sepsis [Fatal]
  - Myelofibrosis [Fatal]
  - Pain [Unknown]
